FAERS Safety Report 5159929-1 (Version None)
Quarter: 2006Q4

REPORT INFORMATION
  Report Type: 
  Country: None (occurrence: None)
  Receive Date: 20061117
  Receipt Date: 20061111
  Transmission Date: 20070319
  Serious: Yes (Other)
  Sender: FDA-Public Use
  Company Number: 2006106679

PATIENT
  Age: 56 Year
  Sex: Male
  Weight: 107.0489 kg

DRUGS (1)
  1. LIPITOR [Suspect]
     Indication: LIPIDS INCREASED
     Dosage: 10 MG (10 MG, 1 IN 1 D), ORAL
     Route: 048
     Dates: start: 20050307

REACTIONS (7)
  - CHILLS [None]
  - CONFUSIONAL STATE [None]
  - HEADACHE [None]
  - HYPERHIDROSIS [None]
  - LETHARGY [None]
  - MENTAL IMPAIRMENT [None]
  - PYREXIA [None]
